FAERS Safety Report 20602072 (Version 1)
Quarter: 2022Q1

REPORT INFORMATION
  Report Type: Spontaneous
  Country: CH (occurrence: CH)
  Receive Date: 20220316
  Receipt Date: 20220316
  Transmission Date: 20220424
  Serious: Yes (Other)
  Sender: FDA-Public Use
  Company Number: CH-BEH-2022143155

PATIENT

DRUGS (12)
  1. PRIVIGEN [Suspect]
     Active Substance: HUMAN IMMUNOGLOBULIN G
     Indication: Product used for unknown indication
     Dosage: UNK
     Route: 064
     Dates: start: 20220112, end: 20220115
  2. PRIVIGEN [Suspect]
     Active Substance: HUMAN IMMUNOGLOBULIN G
     Dosage: UNK
     Route: 064
     Dates: start: 20220203, end: 20220204
  3. PRIVIGEN [Suspect]
     Active Substance: HUMAN IMMUNOGLOBULIN G
     Dosage: UNK
     Route: 064
     Dates: start: 20220227, end: 20220228
  4. PREDNISOLONE [Concomitant]
     Active Substance: PREDNISOLONE
     Route: 064
  5. AZATHIOPRINE [Concomitant]
     Active Substance: AZATHIOPRINE
     Route: 064
  6. ASPIRIN [Concomitant]
     Active Substance: ASPIRIN
     Route: 064
  7. CYCLOSPORINE [Concomitant]
     Active Substance: CYCLOSPORINE
     Route: 064
  8. ACETAMINOPHEN [Concomitant]
     Active Substance: ACETAMINOPHEN
     Route: 064
  9. EUTHYROX [Concomitant]
     Active Substance: LEVOTHYROXINE SODIUM
     Route: 064
  10. CALCIUM\CHOLECALCIFEROL [Concomitant]
     Active Substance: CALCIUM\CHOLECALCIFEROL
     Route: 064
  11. NEXIUM [Concomitant]
     Active Substance: ESOMEPRAZOLE MAGNESIUM
     Route: 064
  12. MAGNESIUM ASPARTATE HYDROCHLORIDE [Concomitant]
     Active Substance: MAGNESIUM ASPARTATE HYDROCHLORIDE
     Route: 064

REACTIONS (4)
  - Single umbilical artery [Unknown]
  - Foetal exposure during pregnancy [Unknown]
  - Renal aplasia [Unknown]
  - Foetal exposure during pregnancy [Unknown]
